FAERS Safety Report 7277122-3 (Version None)
Quarter: 2011Q1

REPORT INFORMATION
  Report Type: 
  Country: None (occurrence: None)
  Receive Date: 20110202
  Receipt Date: 20110202
  Transmission Date: 20110831
  Serious: Yes (Life-Threatening, Disabling, Other)
  Sender: FDA-Public Use
  Company Number: None

PATIENT
  Sex: Female
  Weight: 59.4212 kg

DRUGS (2)
  1. CLONOPIN [Suspect]
     Indication: ANXIETY
     Dosage: 1 TIME DAILY ORALLY
     Route: 048
     Dates: start: 19871201, end: 20010101
  2. NAVANE [Suspect]
     Indication: PSYCHOTIC DISORDER
     Dosage: 1 TIME DAILY ORALLY
     Route: 048
     Dates: start: 19791101, end: 19871201

REACTIONS (7)
  - SCAR [None]
  - ACNE [None]
  - GAIT DISTURBANCE [None]
  - ANXIETY [None]
  - FALL [None]
  - AMENORRHOEA [None]
  - INFERTILITY FEMALE [None]
